FAERS Safety Report 9814941 (Version 1)
Quarter: 2014Q1

REPORT INFORMATION
  Report Type: Spontaneous
  Country: US (occurrence: US)
  Receive Date: 20140113
  Receipt Date: 20140113
  Transmission Date: 20141002
  Serious: No
  Sender: FDA-Public Use
  Company Number: US-PFIZER INC-2014010271

PATIENT
  Age: 78 Year
  Sex: Male
  Weight: 102 kg

DRUGS (5)
  1. CELEBREX [Suspect]
     Indication: BACK DISORDER
     Dosage: 200 MG, DAILY
     Dates: start: 20131220, end: 20140110
  2. GLUCOPHAGE [Concomitant]
     Indication: DIABETES MELLITUS
     Dosage: 850 MG, 3X/DAY
  3. PRINIVIL [Concomitant]
     Dosage: 40 MG, DAILY
  4. LIPITOR [Concomitant]
     Dosage: 20 MG, DAILY
  5. NEXIUM [Concomitant]
     Dosage: 20 MG, DAILY

REACTIONS (2)
  - Drug ineffective [Unknown]
  - Blood pressure increased [Unknown]
